FAERS Safety Report 25772941 (Version 3)
Quarter: 2025Q4

REPORT INFORMATION
  Report Type: Spontaneous
  Country: US (occurrence: None)
  Receive Date: 20250908
  Receipt Date: 20251027
  Transmission Date: 20260118
  Serious: No
  Sender: INCYTE
  Company Number: US-INCYTE CORPORATION-2025IN009380

PATIENT
  Age: 68 Year

DRUGS (1)
  1. JAKAFI [Suspect]
     Active Substance: RUXOLITINIB
     Indication: Lymphocytosis
     Dosage: 20 MILLIGRAM, BID

REACTIONS (4)
  - Rash [Recovered/Resolved]
  - Acne [Recovering/Resolving]
  - Dermatitis allergic [Unknown]
  - Off label use [Unknown]
